FAERS Safety Report 5016790-3 (Version None)
Quarter: 2006Q2

REPORT INFORMATION
  Report Type: 
  Country: None (occurrence: None)
  Receive Date: 20060602
  Receipt Date: 20060111
  Transmission Date: 20061013
  Serious: No
  Sender: FDA-Public Use
  Company Number: US-GLAXOSMITHKLINE-A0588806A

PATIENT
  Sex: Male

DRUGS (4)
  1. AUGMENTIN XR [Suspect]
     Indication: SINUSITIS
     Dosage: 2000MG TWICE PER DAY
     Route: 048
     Dates: start: 20051201
  2. AVODART [Suspect]
  3. CARDURA [Concomitant]
  4. AVODART [Concomitant]

REACTIONS (2)
  - HEADACHE [None]
  - RASH [None]
